FAERS Safety Report 18535273 (Version 2)
Quarter: 2020Q4

REPORT INFORMATION
  Report Type: Report from Study
  Country: PK (occurrence: PK)
  Receive Date: 20201123
  Receipt Date: 20201126
  Transmission Date: 20210114
  Serious: Yes (Death, Hospitalization, Other)
  Sender: FDA-Public Use
  Company Number: NVSC2020PK312161

PATIENT
  Age: 80 Year
  Sex: Male

DRUGS (1)
  1. REVOLADE [Suspect]
     Active Substance: ELTROMBOPAG
     Indication: THROMBOCYTOPENIA
     Dosage: 150 MG, QD
     Route: 048
     Dates: start: 20190823, end: 202011

REACTIONS (4)
  - Loss of consciousness [Unknown]
  - Platelet count decreased [Fatal]
  - Cardiac failure [Fatal]
  - Incorrect dose administered [Unknown]
